FAERS Safety Report 8419589 (Version 3)
Quarter: 2013Q4

REPORT INFORMATION
  Report Type: Spontaneous
  Country: GB (occurrence: GB)
  Receive Date: 20120222
  Receipt Date: 20131101
  Transmission Date: 20140711
  Serious: Yes (Death, Life-Threatening)
  Sender: FDA-Public Use
  Company Number: GB-RANBAXY-2012R1-52695

PATIENT
  Age: 23 Year
  Sex: Male
  Weight: 80 kg

DRUGS (1)
  1. FLUOXETINE [Suspect]
     Indication: PRODUCT USED FOR UNKNOWN INDICATION
     Dosage: UNK
     Route: 048
     Dates: start: 20111202, end: 20120101

REACTIONS (3)
  - Intentional overdose [Unknown]
  - Suicide attempt [Recovered/Resolved]
  - Suicidal ideation [Recovered/Resolved]
